FAERS Safety Report 26209568 (Version 1)
Quarter: 2025Q4

REPORT INFORMATION
  Report Type: Spontaneous
  Country: TW (occurrence: TW)
  Receive Date: 20251229
  Receipt Date: 20251229
  Transmission Date: 20260117
  Serious: Yes (Other)
  Sender: BRISTOL-MYERS SQUIBB COMPANY
  Company Number: TW-BRISTOL-MYERS SQUIBB COMPANY-2025-173534

PATIENT
  Age: 87 Year
  Sex: Female

DRUGS (1)
  1. OPDIVO [Suspect]
     Active Substance: NIVOLUMAB
     Indication: Head and neck cancer
     Route: 042

REACTIONS (5)
  - Hepatic function abnormal [Unknown]
  - Dyspnoea [Unknown]
  - Pyrexia [Unknown]
  - Pneumonia [Unknown]
  - Urinary retention [Unknown]
